FAERS Safety Report 23629963 (Version 1)
Quarter: 2024Q1

REPORT INFORMATION
  Report Type: Spontaneous
  Country: CA (occurrence: CA)
  Receive Date: 20240314
  Receipt Date: 20240314
  Transmission Date: 20240410
  Serious: Yes (Other)
  Sender: FDA-Public Use
  Company Number: CA-SANDOZ-SDZ2024CA027579

PATIENT
  Sex: Male

DRUGS (1)
  1. DORZOLAMIDE AND TIMOLOL [Suspect]
     Active Substance: DORZOLAMIDE HYDROCHLORIDE\TIMOLOL MALEATE
     Indication: Macular degeneration
     Dosage: UNK
     Route: 047

REACTIONS (2)
  - Blindness [Unknown]
  - Thermal burns of eye [Unknown]
